FAERS Safety Report 7314632-4 (Version None)
Quarter: 2011Q1

REPORT INFORMATION
  Report Type: 
  Country: None (occurrence: None)
  Receive Date: 20110225
  Receipt Date: 20101020
  Transmission Date: 20110831
  Serious: No
  Sender: FDA-Public Use
  Company Number: US-MYLANLABS-2010S1019438

PATIENT
  Age: 33 Year
  Sex: Female

DRUGS (7)
  1. AMNESTEEM [Suspect]
     Indication: ACNE
     Route: 048
     Dates: start: 20100601, end: 20100601
  2. ETHANOL [Suspect]
     Route: 048
  3. LEXAPRO [Concomitant]
  4. ORTHO TRI-CYCLEN [Concomitant]
     Indication: ORAL CONTRACEPTION
  5. AMNESTEEM [Suspect]
     Route: 048
     Dates: start: 20101001, end: 20101019
  6. AMNESTEEM [Suspect]
     Route: 048
     Dates: start: 20100701, end: 20100801
  7. BIOTIN [Concomitant]

REACTIONS (1)
  - HEPATIC ENZYME INCREASED [None]
